FAERS Safety Report 13667557 (Version 1)
Quarter: 2017Q2

REPORT INFORMATION
  Report Type: Spontaneous
  Country: CH (occurrence: CH)
  Receive Date: 20170620
  Receipt Date: 20170620
  Transmission Date: 20170830
  Serious: Yes (Hospitalization)
  Sender: FDA-Public Use
  Company Number: CH-ROCHE-1950624

PATIENT
  Age: 30 Year
  Sex: Female
  Weight: 62 kg

DRUGS (5)
  1. NORVASC [Concomitant]
     Active Substance: AMLODIPINE BESYLATE
     Route: 048
  2. PROGRAF [Suspect]
     Active Substance: TACROLIMUS\TACROLIMUS ANHYDROUS
     Indication: RENAL TRANSPLANT
     Route: 048
     Dates: start: 20121015
  3. CELLCEPT [Suspect]
     Active Substance: MYCOPHENOLATE MOFETIL\MYCOPHENOLATE MOFETIL HYDROCHLORIDE
     Indication: RENAL TRANSPLANT
     Route: 048
  4. CERAZETTE (SWITZERLAND) [Suspect]
     Active Substance: DESOGESTREL
     Indication: ORAL CONTRACEPTION
     Route: 048
  5. ESOMEP [Concomitant]
     Active Substance: ESOMEPRAZOLE
     Route: 048

REACTIONS (4)
  - Ischaemic cerebral infarction [Recovered/Resolved]
  - Nausea [Recovered/Resolved]
  - Fall [Unknown]
  - Vomiting [Recovered/Resolved]

NARRATIVE: CASE EVENT DATE: 20170116
